FAERS Safety Report 9587331 (Version 2)
Quarter: 2013Q4

REPORT INFORMATION
  Report Type: Report from Study
  Country: CA (occurrence: CA)
  Receive Date: 20131003
  Receipt Date: 20131011
  Transmission Date: 20140711
  Serious: Yes (Other)
  Sender: FDA-Public Use
  Company Number: CA-JNJFOC-20130916592

PATIENT
  Sex: Female
  Weight: 92.6 kg

DRUGS (5)
  1. REMICADE [Suspect]
     Indication: CROHN^S DISEASE
     Route: 042
     Dates: start: 201109, end: 20130522
  2. ASACOL [Concomitant]
     Route: 065
  3. IMURAN [Concomitant]
     Route: 065
  4. CLOMID [Concomitant]
     Route: 065
  5. VITAMIN [Concomitant]
     Route: 065

REACTIONS (1)
  - Systemic lupus erythematosus [Unknown]
